FAERS Safety Report 16993881 (Version 1)
Quarter: 2019Q4

REPORT INFORMATION
  Report Type: Spontaneous
  Country: US (occurrence: US)
  Receive Date: 20190923
  Receipt Date: 20190923
  Transmission Date: 20200122
  Serious: Yes (Other)
  Sender: FDA-Public Use
  Company Number: None

PATIENT
  Age: 73 Year
  Sex: Male

DRUGS (2)
  1. MODAFINIL. [Suspect]
     Active Substance: MODAFINIL
     Dates: start: 20190816, end: 20190911
  2. ARMODAFINIL. [Suspect]
     Active Substance: ARMODAFINIL

REACTIONS (5)
  - Lethargy [None]
  - Product formulation issue [None]
  - Bedridden [None]
  - Product substitution issue [None]
  - Insurance issue [None]

NARRATIVE: CASE EVENT DATE: 20150915
